FAERS Safety Report 5625536-7 (Version None)
Quarter: 2008Q1

REPORT INFORMATION
  Report Type: 
  Country: None (occurrence: None)
  Receive Date: 20080211
  Receipt Date: 20080211
  Transmission Date: 20080703
  Serious: Yes (Hospitalization)
  Sender: FDA-Public Use
  Company Number: None

PATIENT
  Sex: Male
  Weight: 80 kg

DRUGS (5)
  1. FLUOROURACIL [Suspect]
     Dosage: 5300 MG
     Dates: end: 20080131
  2. BEVACIZUMAB (RHUMAB VEGF) [Suspect]
     Dosage: 400 MG
     Dates: end: 20080131
  3. CAMPTOSAR [Suspect]
     Dosage: 340 MG
     Dates: end: 20080131
  4. LEUCOVORIN CALCIUM [Suspect]
     Dosage: 750 MG
     Dates: end: 20080131
  5. IRON DEXTRAN [Concomitant]

REACTIONS (1)
  - ABDOMINAL PAIN [None]
